FAERS Safety Report 6223464-X (Version None)
Quarter: 2009Q2

REPORT INFORMATION
  Report Type: 
  Country: None (occurrence: None)
  Receive Date: 20090611
  Receipt Date: 20090602
  Transmission Date: 20091009
  Serious: Yes (Hospitalization, Other)
  Sender: FDA-Public Use
  Company Number: US-BAXTER-2009BH008796

PATIENT
  Age: 59 Year
  Sex: Female
  Weight: 95 kg

DRUGS (15)
  1. DIANEAL [Suspect]
     Indication: PERITONEAL DIALYSIS
     Route: 033
     Dates: start: 20080401, end: 20090515
  2. ALLOPURINOL [Concomitant]
     Indication: DRUG USE FOR UNKNOWN INDICATION
     Route: 065
  3. ASPIRIN [Concomitant]
     Indication: DRUG USE FOR UNKNOWN INDICATION
     Route: 065
  4. COLCHICINE [Concomitant]
     Indication: DRUG USE FOR UNKNOWN INDICATION
     Route: 065
  5. VALSARTAN [Concomitant]
     Indication: DRUG USE FOR UNKNOWN INDICATION
     Route: 065
  6. HUMALOG [Concomitant]
     Indication: DRUG USE FOR UNKNOWN INDICATION
     Route: 065
  7. LIPITOR [Concomitant]
     Indication: DRUG USE FOR UNKNOWN INDICATION
     Route: 065
  8. LOPRESSOR [Concomitant]
     Indication: DRUG USE FOR UNKNOWN INDICATION
     Route: 065
  9. NEPHROCAPS [Concomitant]
     Indication: DRUG USE FOR UNKNOWN INDICATION
     Route: 065
  10. NIFEDICAL [Concomitant]
     Indication: DRUG USE FOR UNKNOWN INDICATION
     Route: 065
  11. POTASSIUM CHLORIDE [Concomitant]
     Indication: DRUG USE FOR UNKNOWN INDICATION
     Route: 065
  12. PRILOSEC [Concomitant]
     Indication: DRUG USE FOR UNKNOWN INDICATION
     Route: 065
  13. TUMS [Concomitant]
     Indication: DRUG USE FOR UNKNOWN INDICATION
     Route: 065
  14. PROCRIT [Concomitant]
     Indication: DRUG USE FOR UNKNOWN INDICATION
     Route: 065
  15. LANTUS [Concomitant]
     Indication: DRUG USE FOR UNKNOWN INDICATION
     Route: 065

REACTIONS (2)
  - DIVERTICULITIS [None]
  - FUNGAL PERITONITIS [None]
